FAERS Safety Report 24437916 (Version 2)
Quarter: 2024Q4

REPORT INFORMATION
  Report Type: Report from Study
  Country: DO (occurrence: DO)
  Receive Date: 20241015
  Receipt Date: 20241128
  Transmission Date: 20250115
  Serious: Yes (Hospitalization, Other)
  Sender: ABBVIE
  Company Number: DO-JNJFOC-20241028909

PATIENT
  Age: 66 Year
  Sex: Male
  Weight: 156 kg

DRUGS (1)
  1. IMBRUVICA [Suspect]
     Active Substance: IBRUTINIB
     Indication: Chronic lymphocytic leukaemia
     Route: 048
     Dates: start: 20240201

REACTIONS (2)
  - Arthritis bacterial [Unknown]
  - Abscess limb [Unknown]

NARRATIVE: CASE EVENT DATE: 20240701
